FAERS Safety Report 13174375 (Version 1)
Quarter: 2017Q1

REPORT INFORMATION
  Report Type: Spontaneous
  Country: GB (occurrence: GB)
  Receive Date: 20170201
  Receipt Date: 20170201
  Transmission Date: 20170428
  Serious: Yes (Hospitalization)
  Sender: FDA-Public Use
  Company Number: GB-TEVA-734011ACC

PATIENT
  Age: 79 Year
  Sex: Male

DRUGS (7)
  1. WARFARIN [Suspect]
     Active Substance: WARFARIN
  2. OMEPRAZOLE. [Concomitant]
     Active Substance: OMEPRAZOLE
  3. PARACETAMOL [Concomitant]
     Active Substance: ACETAMINOPHEN
  4. ERYTHROMYCIN. [Suspect]
     Active Substance: ERYTHROMYCIN
  5. BISOPROLOL [Concomitant]
     Active Substance: BISOPROLOL
  6. METOCLOPRAMIDE. [Concomitant]
     Active Substance: METOCLOPRAMIDE
  7. SIMVASTATIN. [Concomitant]
     Active Substance: SIMVASTATIN

REACTIONS (1)
  - Gastrointestinal haemorrhage [Recovered/Resolved]
